FAERS Safety Report 5935360-3 (Version None)
Quarter: 2008Q4

REPORT INFORMATION
  Report Type: 
  Country: None (occurrence: None)
  Receive Date: 20081029
  Receipt Date: 20081029
  Transmission Date: 20090506
  Serious: Yes (Other)
  Sender: FDA-Public Use
  Company Number: None

PATIENT
  Age: 47 Year
  Sex: Female
  Weight: 57.6068 kg

DRUGS (2)
  1. BUPROPION HCL [Suspect]
     Indication: ANXIETY
     Dosage: 1 DAILY PO
     Route: 048
     Dates: start: 20081021, end: 20081027
  2. BUPROPION HCL [Suspect]
     Indication: DEPRESSION
     Dosage: 1 DAILY PO
     Route: 048
     Dates: start: 20081021, end: 20081027

REACTIONS (4)
  - AGITATION [None]
  - CRYING [None]
  - PANIC ATTACK [None]
  - THERAPEUTIC RESPONSE UNEXPECTED WITH DRUG SUBSTITUTION [None]
